FAERS Safety Report 18501354 (Version 1)
Quarter: 2020Q4

REPORT INFORMATION
  Report Type: Spontaneous
  Country: None (occurrence: PL)
  Receive Date: 20201113
  Receipt Date: 20201113
  Transmission Date: 20210114
  Serious: Yes (Other)
  Sender: FDA-Public Use
  Company Number: PL-ORION CORPORATION ORION PHARMA-TREX2020-2274

PATIENT
  Age: 62 Year

DRUGS (5)
  1. METHOTREXATE. [Suspect]
     Active Substance: METHOTREXATE
     Indication: PSORIASIS
     Route: 065
     Dates: start: 201112
  2. METHOTREXATE. [Suspect]
     Active Substance: METHOTREXATE
     Route: 065
     Dates: start: 201801
  3. INFLIXIMAB [Suspect]
     Active Substance: INFLIXIMAB
     Indication: PSORIASIS
     Dosage: 5 MG PER KG BODY WEIGHT
     Route: 065
     Dates: start: 201803
  4. METHOTREXATE. [Suspect]
     Active Substance: METHOTREXATE
     Route: 065
  5. IXEKIZUMAB [Suspect]
     Active Substance: IXEKIZUMAB
     Indication: PSORIASIS
     Route: 065
     Dates: start: 20190710, end: 201911

REACTIONS (2)
  - Hepatic enzyme increased [Unknown]
  - Prostate cancer [Unknown]
